FAERS Safety Report 14409442 (Version 2)
Quarter: 2018Q1

REPORT INFORMATION
  Report Type: Report from Study
  Country: None (occurrence: BR)
  Receive Date: 20180119
  Receipt Date: 20180119
  Transmission Date: 20180509
  Serious: Yes (Death, Hospitalization, Congenital Anomaly, Other)
  Sender: FDA-Public Use
  Company Number: BR-ABBVIE-18K-020-2227531-00

PATIENT
  Age: 30 Year
  Sex: Male
  Weight: 58 kg

DRUGS (1)
  1. HUMIRA [Suspect]
     Active Substance: ADALIMUMAB
     Indication: COLITIS ULCERATIVE
     Route: 058
     Dates: start: 20150325

REACTIONS (10)
  - Liver transplant [Unknown]
  - Post procedural haemorrhage [Unknown]
  - Post procedural complication [Unknown]
  - Death [Fatal]
  - Surgery [Unknown]
  - Intra-abdominal fluid collection [Unknown]
  - Post procedural infection [Unknown]
  - Biliary tract infection [Unknown]
  - Hospitalisation [Unknown]
  - Renal disorder [Unknown]

NARRATIVE: CASE EVENT DATE: 20180109
